FAERS Safety Report 7933021-2 (Version None)
Quarter: 2011Q4

REPORT INFORMATION
  Report Type: 
  Country: None (occurrence: None)
  Receive Date: 20111121
  Receipt Date: 20111121
  Transmission Date: 20120403
  Serious: Yes (Hospitalization)
  Sender: FDA-Public Use
  Company Number: None

PATIENT
  Sex: Male
  Weight: 149 kg

DRUGS (3)
  1. TAXOL [Suspect]
     Dosage: 504 MG
  2. BEVACIZUMAB (RHUMAB VEGF) [Suspect]
     Dosage: 2368 MG
  3. CARBOPLATIN [Suspect]
     Dosage: 740 MG

REACTIONS (2)
  - HYPOTENSION [None]
  - PANCYTOPENIA [None]
